FAERS Safety Report 9725679 (Version 1)
Quarter: 2013Q4

REPORT INFORMATION
  Report Type: Spontaneous
  Country: IE (occurrence: IE)
  Receive Date: 20131203
  Receipt Date: 20131203
  Transmission Date: 20140711
  Serious: Yes (Other)
  Sender: FDA-Public Use
  Company Number: IE-ASTRAZENECA-2013SE73039

PATIENT
  Sex: 0

DRUGS (1)
  1. SYMBICORT [Suspect]
     Route: 055

REACTIONS (1)
  - Adrenal insufficiency [Unknown]
